FAERS Safety Report 8078666-7 (Version None)
Quarter: 2012Q1

REPORT INFORMATION
  Report Type: 
  Country: None (occurrence: None)
  Receive Date: 20120124
  Receipt Date: 20110901
  Transmission Date: 20120608
  Serious: Yes (Hospitalization)
  Sender: FDA-Public Use
  Company Number: FL-0024430

PATIENT
  Age: 72 Year
  Sex: Male

DRUGS (6)
  1. SIMVASTATIN [Concomitant]
  2. AMILORIDE HYDROCHLORIDE [Concomitant]
  3. (RITUXIMAB) [Suspect]
     Dosage: 1050 MG 1X/MONTH INTRAVNEOUS (NOT OTHERWISE SPECIFIED)
     Route: 042
  4. METOPROLOL TARTRATE [Concomitant]
  5. ACETYLSALICYLIC ACID SRT [Concomitant]
  6. (CHLORAMBUCIL) [Suspect]
     Indication: CHRONIC LYMPHOCYTIC LEUKAEMIA
     Dosage: 20 MG QDM ORAL
     Route: 048
     Dates: start: 20110131

REACTIONS (3)
  - FACIAL PAIN [None]
  - PYREXIA [None]
  - SINUSITIS [None]
